FAERS Safety Report 5433204-X (Version None)
Quarter: 2007Q3

REPORT INFORMATION
  Report Type: 
  Country: None (occurrence: None)
  Receive Date: 20070828
  Receipt Date: 20070828
  Transmission Date: 20080115
  Serious: No
  Sender: FDA-Public Use
  Company Number: None

PATIENT
  Age: 52 Year
  Sex: Female
  Weight: 70.3075 kg

DRUGS (1)
  1. AMITRIPTLINE HCL [Suspect]
     Indication: MIGRAINE
     Dosage: 25 MG EVERY DAY PO
     Route: 048
     Dates: start: 20070815, end: 20070825

REACTIONS (4)
  - DYSGEUSIA [None]
  - NAUSEA [None]
  - PHARMACEUTICAL PRODUCT COMPLAINT [None]
  - THROAT IRRITATION [None]
